FAERS Safety Report 4895607-1 (Version None)
Quarter: 2006Q1

REPORT INFORMATION
  Report Type: 
  Country: None (occurrence: None)
  Receive Date: 20060125
  Receipt Date: 20060116
  Transmission Date: 20060701
  Serious: No
  Sender: FDA-Public Use
  Company Number: TPA2006A00057

PATIENT
  Age: 52 Year
  Sex: Female
  Weight: 108.8633 kg

DRUGS (5)
  1. ACTOS [Suspect]
     Indication: DIABETES MELLITUS NON-INSULIN-DEPENDENT
     Dosage: 45 MG, 2 IN 1 D, PER ORAL
     Route: 048
     Dates: start: 20060106
  2. LISINOPRIL [Concomitant]
  3. HYDROCHLOROTHIAZIDE [Concomitant]
  4. DIGEST (DIGESTIVES, INCL ENZYMES) [Concomitant]
  5. MULTI PROBIOTIC (LACTOBACILLUS REUTERI) [Concomitant]

REACTIONS (2)
  - BLOOD GLUCOSE INCREASED [None]
  - NAUSEA [None]
